FAERS Safety Report 6477523-7 (Version None)
Quarter: 2009Q4

REPORT INFORMATION
  Report Type: 
  Country: None (occurrence: None)
  Receive Date: 20091207
  Receipt Date: 20091125
  Transmission Date: 20100525
  Serious: Yes (Hospitalization)
  Sender: FDA-Public Use
  Company Number: US-ALEXION-A200900933

PATIENT
  Weight: 2.322 kg

DRUGS (1)
  1. SOLIRIS [Suspect]

REACTIONS (1)
  - WHITE BLOOD CELL COUNT INCREASED [None]
